FAERS Safety Report 9524304 (Version 1)
Quarter: 2013Q1

REPORT INFORMATION
  Report Type: Spontaneous
  Country: US (occurrence: None)
  Receive Date: 20130314
  Receipt Date: 20130314
  Transmission Date: 20140127
  Serious: No
  Sender: FDA-Public Use
  Company Number: 1301USA003328

PATIENT
  Age: 58 Year
  Sex: Male

DRUGS (6)
  1. VICTRELIS (BOCEPREVIR) CAPSULE, 200MG [Suspect]
     Route: 048
  2. PEGASYS (PEGINTERFERON ALFA-2A) INJECTION [Suspect]
  3. RIBAVIRIN [Suspect]
  4. ASCORBIC ACID [Concomitant]
  5. VITAMINS [Concomitant]
  6. VITAMIN A [Concomitant]

REACTIONS (1)
  - White blood cell count decreased [None]
